FAERS Safety Report 7820101 (Version 4)
Quarter: 2012Q4

REPORT INFORMATION
  Report Type: 
  Country: GB (occurrence: GB)
  Receive Date: 20110221
  Receipt Date: 20121213
  Transmission Date: 20130627
  Serious: Yes (Other)
  Sender: FDA-Public Use
  Company Number: GB-BAYER-2011-014112

PATIENT
  Age: 39 Year
  Sex: Female
  Weight: 116 kg

DRUGS (7)
  1. SORAFENIB (RAF KINASE INHIBITOR) [Suspect]
     Indication: SALIVARY GLAND CANCER
     Dosage: Daily dose 800 mg
     Route: 048
     Dates: start: 20101022, end: 20110204
  2. ATENOLOL [Concomitant]
     Dosage: UNK
     Route: 048
  3. AMLODIPINE [Concomitant]
     Dosage: UNK
     Route: 048
  4. CYCLIZINE [Concomitant]
     Dosage: UNK
     Route: 048
  5. MICROGYNON [Concomitant]
     Dosage: UNK
     Route: 048
  6. MST [MORPHINE SULFATE] [Concomitant]
     Dosage: UNK
     Route: 048
     Dates: start: 20101105
  7. OROMORPH [Concomitant]
     Dosage: UNK
     Route: 048
     Dates: start: 20101105

REACTIONS (1)
  - Skin ulcer [Recovered/Resolved]
